FAERS Safety Report 6061315-7 (Version None)
Quarter: 2009Q1

REPORT INFORMATION
  Report Type: 
  Country: None (occurrence: None)
  Receive Date: 20090202
  Receipt Date: 20090127
  Transmission Date: 20090719
  Serious: Yes (Hospitalization)
  Sender: FDA-Public Use
  Company Number: JP-MERCK-0901USA04210

PATIENT

DRUGS (1)
  1. HYZAAR [Suspect]
     Indication: HYPERTENSION
     Route: 048
     Dates: start: 20081215, end: 20081230

REACTIONS (3)
  - DUODENAL PERFORATION [None]
  - HYPONATRAEMIA [None]
  - LOSS OF CONSCIOUSNESS [None]
